FAERS Safety Report 6673336-1 (Version None)
Quarter: 2010Q2

REPORT INFORMATION
  Report Type: 
  Country: None (occurrence: None)
  Receive Date: 20100408
  Receipt Date: 20100331
  Transmission Date: 20101027
  Serious: Yes (Other)
  Sender: FDA-Public Use
  Company Number: GR-WATSON-2010-04397

PATIENT
  Age: 60 Year
  Sex: Female

DRUGS (2)
  1. METHYLPREDNISOLONE ACETATE [Suspect]
     Indication: ANTIINFLAMMATORY THERAPY
     Dosage: 16 MG 2X3 PER DAY
     Dates: start: 20070101, end: 20070101
  2. PREDNISONE [Suspect]
     Indication: ANTIINFLAMMATORY THERAPY
     Dosage: HIGH DOSE
     Dates: start: 20070101, end: 20070101

REACTIONS (5)
  - ASCITES [None]
  - ASPERGILLOSIS [None]
  - DIABETES MELLITUS [None]
  - HEPATIC ENCEPHALOPATHY [None]
  - PLEURAL EFFUSION [None]
